FAERS Safety Report 18793329 (Version 1)
Quarter: 2021Q1

REPORT INFORMATION
  Report Type: Spontaneous
  Country: US (occurrence: US)
  Receive Date: 20210125
  Receipt Date: 20210125
  Transmission Date: 20210419
  Serious: No
  Sender: FDA-Public Use
  Company Number: None

PATIENT
  Age: 73 Year
  Sex: Male

DRUGS (1)
  1. POMALYST [Suspect]
     Active Substance: POMALIDOMIDE
     Indication: PLASMA CELL MYELOMA
     Route: 048
     Dates: start: 20200430, end: 20201214

REACTIONS (4)
  - Diarrhoea [None]
  - Skin lesion [None]
  - Anxiety [None]
  - Rash [None]

NARRATIVE: CASE EVENT DATE: 20201214
